FAERS Safety Report 10163945 (Version 2)
Quarter: 2014Q2

REPORT INFORMATION
  Report Type: Spontaneous
  Country: US (occurrence: US)
  Receive Date: 20140510
  Receipt Date: 20140510
  Transmission Date: 20141212
  Serious: No
  Sender: FDA-Public Use
  Company Number: US-BRISTOL-MYERS SQUIBB COMPANY-19682327

PATIENT
  Sex: Female

DRUGS (4)
  1. BYETTA PEN DISPOSABLE [Suspect]
     Dosage: STRENGTH:250MCG/ML 10MCG
  2. INSULIN [Concomitant]
  3. GLIPIZIDE [Concomitant]
  4. HUMULIN N [Concomitant]
     Dosage: 100 -  25 UNITS AT BEDTIME.

REACTIONS (2)
  - Product quality issue [Unknown]
  - Drug dose omission [Unknown]
